FAERS Safety Report 9364742 (Version 2)
Quarter: 2013Q4

REPORT INFORMATION
  Report Type: Spontaneous
  Country: US (occurrence: US)
  Receive Date: 20130624
  Receipt Date: 20131014
  Transmission Date: 20140711
  Serious: Yes (Death, Hospitalization)
  Sender: FDA-Public Use
  Company Number: US-B.I. PHARMACEUTICALS,INC./RIDGEFIELD-2013-BI-17599BP

PATIENT
  Sex: Female

DRUGS (4)
  1. SPIRIVA [Suspect]
     Indication: CHRONIC OBSTRUCTIVE PULMONARY DISEASE
     Dosage: 18 MCG
     Route: 055
     Dates: start: 2009
  2. MEDROL [Concomitant]
     Route: 048
  3. PROVENTIL [Concomitant]
     Route: 055
  4. ADVAIR [Concomitant]
     Route: 055

REACTIONS (2)
  - Lung neoplasm malignant [Fatal]
  - Pneumonia [Unknown]
